FAERS Safety Report 7997810-0 (Version None)
Quarter: 2011Q4

REPORT INFORMATION
  Report Type: 
  Country: None (occurrence: None)
  Receive Date: 20111221
  Receipt Date: 20111209
  Transmission Date: 20120403
  Serious: Yes (Other)
  Sender: FDA-Public Use
  Company Number: PHEH2011US05924

PATIENT
  Sex: Female

DRUGS (7)
  1. AREDIA [Suspect]
     Indication: OSTEOPOROSIS
  2. DEXAMETHASONE [Concomitant]
     Dosage: 20 MG, UNK
     Route: 042
  3. DIPHENHYDRAMINE HCL [Concomitant]
     Dosage: 50 MG, UNK
  4. AREDIA [Suspect]
     Indication: BONE LOSS
     Dosage: 90 MG, UNK
     Route: 042
  5. ANZEMET [Concomitant]
     Dosage: 100 MG, UNK
     Route: 042
  6. PACLITAXEL [Concomitant]
     Dosage: 297 MG, UNK
     Route: 042
  7. CIMETIDINE [Concomitant]
     Dosage: 300 MG, UNK
     Route: 042

REACTIONS (12)
  - METASTASES TO LYMPH NODES [None]
  - FEBRILE NEUTROPENIA [None]
  - OROPHARYNGEAL PAIN [None]
  - BONE LESION [None]
  - METASTASES TO BONE [None]
  - BREAST CANCER FEMALE [None]
  - ENTERITIS [None]
  - NECK PAIN [None]
  - BACK PAIN [None]
  - BREAST MASS [None]
  - HEADACHE [None]
  - DEHYDRATION [None]
